FAERS Safety Report 10619252 (Version 1)
Quarter: 2014Q4

REPORT INFORMATION
  Report Type: Report from Study
  Country: AU (occurrence: None)
  Receive Date: 20141126
  Receipt Date: 20141126
  Transmission Date: 20150529
  Serious: Yes (Other)
  Sender: FDA-Public Use
  Company Number: 2014-20794

PATIENT
  Age: 77 Year
  Sex: Female

DRUGS (1)
  1. EYLEA [Suspect]
     Active Substance: AFLIBERCEPT
     Indication: AGE-RELATED MACULAR DEGENERATION
     Dosage: Q6WK
     Route: 031
     Dates: start: 201301

REACTIONS (6)
  - Photopsia [None]
  - Macular degeneration [None]
  - Injection site pain [None]
  - Inappropriate schedule of drug administration [None]
  - Eye pain [None]
  - Eye pruritus [None]

NARRATIVE: CASE EVENT DATE: 2014
